FAERS Safety Report 18225068 (Version 1)
Quarter: 2020Q3

REPORT INFORMATION
  Report Type: Spontaneous
  Country: US (occurrence: US)
  Receive Date: 20200903
  Receipt Date: 20200903
  Transmission Date: 20201103
  Serious: Yes (Other)
  Sender: FDA-Public Use
  Company Number: US-JNJFOC-20200846194

PATIENT
  Sex: Male

DRUGS (4)
  1. SELEGILINE [Concomitant]
     Active Substance: SELEGILINE
     Indication: PARKINSON^S DISEASE
     Route: 065
  2. LEVODOPA [Concomitant]
     Active Substance: LEVODOPA
     Indication: PARKINSON^S DISEASE
     Dosage: DAILY LEVODOPA DOSE HAD INCREASED TO 600 MG
     Route: 065
  3. CARBIDOPA?LEVODOPA [Concomitant]
     Active Substance: CARBIDOPA\LEVODOPA
     Indication: PARKINSON^S DISEASE
     Dosage: TOTAL DAILY LEVODOPA DOSE OF 250 MG
     Route: 065
  4. DIPHENHYDRAMINE HYDROCHLORIDE. [Suspect]
     Active Substance: DIPHENHYDRAMINE HYDROCHLORIDE
     Indication: SALIVARY HYPERSECRETION
     Route: 065

REACTIONS (3)
  - Product use in unapproved indication [Unknown]
  - Hallucination [Unknown]
  - Confusional state [Unknown]
